FAERS Safety Report 15230319 (Version 1)
Quarter: 2018Q3

REPORT INFORMATION
  Report Type: Spontaneous
  Country: ZA (occurrence: ZA)
  Receive Date: 20180802
  Receipt Date: 20180802
  Transmission Date: 20181010
  Serious: Yes (Death, Hospitalization)
  Sender: FDA-Public Use
  Company Number: ZA-DRREDDYS-SAF/SAF/18/0100922

PATIENT
  Sex: Female

DRUGS (12)
  1. UNAT [Suspect]
     Active Substance: TORSEMIDE
     Indication: HYPERTENSION
     Route: 048
  2. ASPEN WARFARIN [Suspect]
     Active Substance: WARFARIN
     Indication: ANTICOAGULANT THERAPY
     Route: 048
  3. PURGOXIN [Suspect]
     Active Substance: DIGOXIN
     Indication: ARRHYTHMIA
     Route: 048
  4. ACTIVELLE [Suspect]
     Active Substance: ESTRADIOL\NORETHINDRONE ACETATE
     Indication: HORMONE THERAPY
     Route: 048
  5. ECOTRIN [Suspect]
     Active Substance: ASPIRIN
     Indication: ANTICOAGULANT THERAPY
     Route: 048
  6. TRANQIPAM [Suspect]
     Active Substance: LORAZEPAM
     Indication: STRESS
     Route: 048
  7. ALDACTONE [Suspect]
     Active Substance: SPIRONOLACTONE
     Indication: HYPERTENSION
     Route: 048
  8. SLOW?MAG [Suspect]
     Active Substance: MAGNESIUM CHLORIDE
     Indication: BLOOD MAGNESIUM
     Route: 048
  9. HYPERPHEN [Suspect]
     Active Substance: HYDRALAZINE HYDROCHLORIDE
     Indication: HYPERTENSION
     Route: 048
  10. BETACOR (BETAMETHASONE) [Suspect]
     Active Substance: BETAMETHASONE
     Indication: HYPERTENSION
     Route: 048
  11. OMEZ [Suspect]
     Active Substance: OMEPRAZOLE
     Indication: ULCER
     Route: 048
  12. ELTROXIN NEW FORMULATION [Suspect]
     Active Substance: LEVOTHYROXINE SODIUM
     Indication: THYROID DISORDER
     Route: 048

REACTIONS (2)
  - Death [Fatal]
  - Cardiac disorder [Unknown]
